FAERS Safety Report 8976256 (Version 1)
Quarter: 2012Q4

REPORT INFORMATION
  Report Type: 
  Country: US (occurrence: US)
  Receive Date: 20121220
  Receipt Date: 20121220
  Transmission Date: 20130627
  Serious: No
  Sender: FDA-Public Use
  Company Number: US-ASTRAZENECA-2012SE91642

PATIENT
  Age: 73 Year
  Sex: Female
  Weight: 83.9 kg

DRUGS (2)
  1. SYMBICORT [Suspect]
     Indication: CHRONIC OBSTRUCTIVE PULMONARY DISEASE
     Dosage: 160/ 4.5 mcg, 2 PUFFS BID
     Route: 055
     Dates: start: 201211, end: 20121203
  2. METFORMIN [Concomitant]
     Indication: DIABETES MELLITUS

REACTIONS (8)
  - Abdominal pain [Recovered/Resolved]
  - Back pain [Recovered/Resolved]
  - Diarrhoea [Recovered/Resolved]
  - Pain in extremity [Recovered/Resolved]
  - Pain in extremity [Recovered/Resolved]
  - Pain in extremity [Recovered/Resolved]
  - Muscle spasms [Recovered/Resolved]
  - Oropharyngeal pain [Unknown]
